FAERS Safety Report 26002257 (Version 1)
Quarter: 2025Q4

REPORT INFORMATION
  Report Type: Report from Study
  Country: EU (occurrence: EU)
  Receive Date: 20251105
  Receipt Date: 20251105
  Transmission Date: 20260118
  Serious: Yes (Other)
  Sender: SERVIER
  Company Number: EU-SERVIER-S25015789

PATIENT

DRUGS (1)
  1. VORASIDENIB [Suspect]
     Active Substance: VORASIDENIB
     Indication: Glioma
     Dosage: UNK
     Route: 048

REACTIONS (1)
  - Hepatic cytolysis [Unknown]

NARRATIVE: CASE EVENT DATE: 20250903
